FAERS Safety Report 12935916 (Version 1)
Quarter: 2016Q4

REPORT INFORMATION
  Report Type: Spontaneous
  Country: US (occurrence: US)
  Receive Date: 20161114
  Receipt Date: 20161114
  Transmission Date: 20170207
  Serious: Yes (Other)
  Sender: FDA-Public Use
  Company Number: US-BAUSCH-BL-2016-027469

PATIENT
  Sex: Male
  Weight: 103.06 kg

DRUGS (1)
  1. XENAZINE [Suspect]
     Active Substance: TETRABENAZINE
     Indication: TOURETTE^S DISORDER
     Dosage: ONE AND A HALF TABLETS THREE TIMES DAILY
     Route: 048
     Dates: start: 201506

REACTIONS (5)
  - Condition aggravated [Unknown]
  - Weight increased [Unknown]
  - Anxiety [Unknown]
  - Insomnia [Unknown]
  - Off label use [Unknown]
